FAERS Safety Report 21749899 (Version 1)
Quarter: 2022Q4

REPORT INFORMATION
  Report Type: Spontaneous
  Country: US (occurrence: US)
  Receive Date: 20221219
  Receipt Date: 20221219
  Transmission Date: 20230113
  Serious: No
  Sender: FDA-Public Use
  Company Number: US-JNJFOC-20221222899

PATIENT
  Sex: Female

DRUGS (3)
  1. TOPAMAX [Suspect]
     Active Substance: TOPIRAMATE
     Indication: Weight decreased
     Route: 048
     Dates: start: 2022
  2. TOPAMAX [Suspect]
     Active Substance: TOPIRAMATE
     Indication: Food craving
  3. PHENTERMINE [Concomitant]
     Active Substance: PHENTERMINE
     Indication: Product used for unknown indication
     Dates: start: 2022

REACTIONS (5)
  - Weight decreased [Unknown]
  - Ageusia [Recovered/Resolved]
  - Anosmia [Recovered/Resolved]
  - Off label use [Unknown]
  - Food craving [Unknown]

NARRATIVE: CASE EVENT DATE: 20221101
